FAERS Safety Report 9319573 (Version 1)
Quarter: 2013Q2

REPORT INFORMATION
  Report Type: Spontaneous
  Country: US (occurrence: None)
  Receive Date: 20130529
  Receipt Date: 20130529
  Transmission Date: 20140414
  Serious: Yes (Congenital Anomaly, Other)
  Sender: FDA-Public Use
  Company Number: None

PATIENT
  Age: 0 Day
  Sex: Female
  Weight: 3.13 kg

DRUGS (2)
  1. METFORMIN HYDROCHLORIDE [Suspect]
     Indication: POLYCYSTIC OVARIES
     Route: 048
     Dates: start: 20120812, end: 20121201
  2. METFORMIN HYDROCHLORIDE [Suspect]
     Indication: PREGNANCY
     Route: 048
     Dates: start: 20120812, end: 20121201

REACTIONS (9)
  - Maternal drugs affecting foetus [None]
  - Anal atresia [None]
  - VACTERL syndrome [None]
  - Tethered cord syndrome [None]
  - Kidney malformation [None]
  - Congenital uterine anomaly [None]
  - Double ureter [None]
  - Congenital genital malformation female [None]
  - Female genital tract fistula [None]
